FAERS Safety Report 16595726 (Version 3)
Quarter: 2022Q3

REPORT INFORMATION
  Report Type: Spontaneous
  Country: FR (occurrence: FR)
  Receive Date: 20190719
  Receipt Date: 20220712
  Transmission Date: 20221027
  Serious: Yes (Hospitalization, Other)
  Sender: FDA-Public Use
  Company Number: FR-AUROBINDO-AUR-APL-2019-040255

PATIENT
  Age: 61 Year
  Sex: Male
  Weight: 83.6 kg

DRUGS (13)
  1. ATORVASTATIN [Suspect]
     Active Substance: ATORVASTATIN
     Indication: Hypercholesterolaemia
     Dosage: 40 MILLIGRAM, ONCE A DAY,0-0-1
     Route: 048
     Dates: start: 20190522
  2. VALACYCLOVIR [Suspect]
     Active Substance: VALACYCLOVIR HYDROCHLORIDE
     Indication: Pathogen resistance
     Dosage: 1000 MILLIGRAM, ONCE A DAY
     Route: 048
     Dates: start: 20190523
  3. VALACYCLOVIR [Suspect]
     Active Substance: VALACYCLOVIR HYDROCHLORIDE
     Indication: Antiviral treatment
  4. FLUCONAZOLE [Suspect]
     Active Substance: FLUCONAZOLE
     Indication: Fungal infection
     Dosage: 400 MILLIGRAM,(QD (2-0-0) ) ONCE A DAY
     Route: 048
     Dates: start: 20190524, end: 20190527
  5. DESFERAL [Suspect]
     Active Substance: DEFEROXAMINE MESYLATE
     Indication: Iron overload
     Dosage: 1400 MILLIGRAM, ONCE A DAY
     Route: 042
     Dates: start: 20190523
  6. EXJADE [Suspect]
     Active Substance: DEFERASIROX
     Indication: Iron overload
     Dosage: 360 MILLIGRAM,(1-0-1 ) ONCE A DAY
     Route: 048
     Dates: start: 20190523
  7. EXJADE [Suspect]
     Active Substance: DEFERASIROX
     Dosage: 360 MILLIGRAM, (1-0-1 )ONCE A DAY
     Route: 048
     Dates: start: 20190606, end: 20190616
  8. EXJADE [Suspect]
     Active Substance: DEFERASIROX
     Dosage: 180 MILLIGRAM, ONCE A DAY
     Route: 048
     Dates: start: 20190525, end: 20190531
  9. PIPERACILLIN SODIUM\TAZOBACTAM SODIUM [Suspect]
     Active Substance: PIPERACILLIN SODIUM\TAZOBACTAM SODIUM
     Indication: Infection
     Dosage: 4 DOSAGE FORM, ONCE A DAY
     Route: 042
     Dates: start: 20190526
  10. NOXAFIL [Suspect]
     Active Substance: POSACONAZOLE
     Indication: Fungal infection
     Dosage: 300 MILLIGRAM, (QD (3-0-0) )ONCE A DAY
     Route: 048
     Dates: start: 20190528, end: 20190621
  11. VYXEOS [Suspect]
     Active Substance: CYTARABINE\DAUNORUBICIN
     Indication: Acute myeloid leukaemia
     Dosage: 1 DOSAGE FORM, CYCLICAL,90 MIN PERF OF D1, D3, D5
     Route: 042
     Dates: start: 20190524
  12. ONDANSETRON [Suspect]
     Active Substance: ONDANSETRON
     Indication: Antiemetic supportive care
     Dosage: 16 MILLIGRAM, ONCE A DAY
     Route: 048
     Dates: start: 20190524
  13. CRESTOR [Concomitant]
     Active Substance: ROSUVASTATIN CALCIUM
     Indication: Hypercholesterolaemia
     Dosage: 5 MILLIGRAM, ONCE A DAY (QD)
     Route: 048
     Dates: start: 20190522

REACTIONS (5)
  - Toxic skin eruption [Recovering/Resolving]
  - Rash [Recovering/Resolving]
  - Cholestasis [Recovering/Resolving]
  - Condition aggravated [Recovering/Resolving]
  - Hepatic cytolysis [Recovering/Resolving]

NARRATIVE: CASE EVENT DATE: 20190527
